FAERS Safety Report 9641996 (Version 1)
Quarter: 2013Q4

REPORT INFORMATION
  Report Type: Spontaneous
  Country: US (occurrence: None)
  Receive Date: 20131022
  Receipt Date: 20131022
  Transmission Date: 20140711
  Serious: Yes (Hospitalization, Disabling, Other)
  Sender: FDA-Public Use
  Company Number: ABR_01202_2013

PATIENT
  Age: 35 Year
  Sex: Female

DRUGS (64)
  1. ERYTHROMYCIN [Suspect]
     Indication: PRODUCT USED FOR UNKNOWN INDICATION
  2. ATENOLOL [Suspect]
     Indication: HYPERTENSION
     Route: 048
  3. CANDESARTAN [Suspect]
     Indication: PRODUCT USED FOR UNKNOWN INDICATION
     Route: 048
  4. ESOMEPRAZOLE [Suspect]
     Indication: PRODUCT USED FOR UNKNOWN INDICATION
     Route: 048
  5. LISINOPRIL [Suspect]
     Indication: PRODUCT USED FOR UNKNOWN INDICATION
     Route: 048
  6. OMEPRAZOLE [Suspect]
     Indication: PRODUCT USED FOR UNKNOWN INDICATION
     Route: 048
  7. METOPROLOL [Suspect]
     Indication: PRODUCT USED FOR UNKNOWN INDICATION
     Route: 048
  8. DIAZEPAM [Suspect]
     Indication: PRODUCT USED FOR UNKNOWN INDICATION
  9. ALPRAZOLAM [Suspect]
     Indication: PRODUCT USED FOR UNKNOWN INDICATION
  10. CLONAZEPAM [Suspect]
     Indication: MUSCLE SPASMS
  11. AMLODIPINE [Suspect]
     Indication: HYPERTENSION
     Route: 048
  12. GABAPENTIN [Suspect]
     Indication: PRODUCT USED FOR UNKNOWN INDICATION
     Route: 048
  13. PREVACID [Suspect]
     Indication: PRODUCT USED FOR UNKNOWN INDICATION
  14. CELECOXIB [Suspect]
     Indication: PRODUCT USED FOR UNKNOWN INDICATION
  15. CLOTRIMAZOLE [Suspect]
     Indication: PRODUCT USED FOR UNKNOWN INDICATION
  16. DICLOFENAC SODIUM [Suspect]
     Indication: PRODUCT USED FOR UNKNOWN INDICATION
  17. FLUCONAZOLE [Suspect]
     Indication: PRODUCT USED FOR UNKNOWN INDICATION
  18. FLUOXETINE [Suspect]
     Indication: PRODUCT USED FOR UNKNOWN INDICATION
  19. FLUTICASONE [Suspect]
     Indication: PRODUCT USED FOR UNKNOWN INDICATION
  20. KETOCONAZOLE [Suspect]
     Indication: PRODUCT USED FOR UNKNOWN INDICATION
  21. AVELOX [Suspect]
     Indication: PRODUCT USED FOR UNKNOWN INDICATION
  22. OLMESARTAN [Suspect]
     Indication: PRODUCT USED FOR UNKNOWN INDICATION
  23. TRAMADOL [Suspect]
     Indication: PRODUCT USED FOR UNKNOWN INDICATION
  24. VERAPAMIL [Suspect]
     Indication: HYPERTENSION
  25. PETHIDINE HYDROCHLORIDE [Suspect]
     Indication: PRODUCT USED FOR UNKNOWN INDICATION
  26. LASIX [Suspect]
     Indication: PRODUCT USED FOR UNKNOWN INDICATION
  27. AMOXICILLIN SODIUM W/CLAVULANATE POTASSIUM [Suspect]
     Indication: PRODUCT USED FOR UNKNOWN INDICATION
  28. ATROPINE SULFATE W/DIFENOXIN HYDROCHLORIDE [Suspect]
     Indication: PRODUCT USED FOR UNKNOWN INDICATION
  29. BETAMETHASONE DIPROPIONATE, CLOTRIMAZOLE [Suspect]
     Indication: PRODUCT USED FOR UNKNOWN INDICATION
  30. ZEBETA [Suspect]
     Indication: PRODUCT USED FOR UNKNOWN INDICATION
  31. BUPROPION HYDROCHLORIDE [Suspect]
     Indication: PRODUCT USED FOR UNKNOWN INDICATION
  32. CARBIDOPA AND LEVODOPA [Suspect]
     Indication: PRODUCT USED FOR UNKNOWN INDICATION
  33. CARISOPRODOL [Suspect]
     Indication: PRODUCT USED FOR UNKNOWN INDICATION
  34. CEPHALEXIN [Suspect]
     Indication: PRODUCT USED FOR UNKNOWN INDICATION
  35. CEFAZOLIN SODIUM [Suspect]
     Indication: PRODUCT USED FOR UNKNOWN INDICATION
  36. CETIRIZINE HCL [Suspect]
     Indication: PRODUCT USED FOR UNKNOWN INDICATION
  37. CHLORPHENAMINE MALEATE W/PSEUDOEPHEDRINE HCL [Suspect]
     Indication: PRODUCT USED FOR UNKNOWN INDICATION
  38. ENDAL HD [Suspect]
     Indication: PRODUCT USED FOR UNKNOWN INDICATION
  39. DEXAMETHASONE [Suspect]
     Indication: PRODUCT USED FOR UNKNOWN INDICATION
  40. ECONAZOLE NITRATE [Suspect]
     Indication: PRODUCT USED FOR UNKNOWN INDICATION
  41. ALLEGRA-D [Suspect]
     Indication: PRODUCT USED FOR UNKNOWN INDICATION
  42. FLUTICASONE W/SALMETEROL [Suspect]
     Indication: PRODUCT USED FOR UNKNOWN INDICATION
  43. GUAIFENESIN, HYDROCODONE BITARTRATE [Suspect]
     Indication: PRODUCT USED FOR UNKNOWN INDICATION
  44. EXGEST LA [Suspect]
     Indication: PRODUCT USED FOR UNKNOWN INDICATION
  45. GUAIFENESIN [Suspect]
     Indication: PRODUCT USED FOR UNKNOWN INDICATION
  46. ZYDONE [Suspect]
     Indication: PRODUCT USED FOR UNKNOWN INDICATION
  47. LORTAB [Suspect]
     Indication: PRODUCT USED FOR UNKNOWN INDICATION
  48. LORCET-HD [Suspect]
     Indication: PRODUCT USED FOR UNKNOWN INDICATION
  49. LATANOPROST [Suspect]
     Indication: PRODUCT USED FOR UNKNOWN INDICATION
  50. LOSARTAN POTASSIUM [Suspect]
     Indication: PRODUCT USED FOR UNKNOWN INDICATION
  51. MELOXICAM [Suspect]
     Indication: PRODUCT USED FOR UNKNOWN INDICATION
  52. METAXALONE [Suspect]
     Indication: PRODUCT USED FOR UNKNOWN INDICATION
  53. MOMETASONE FUROATE [Suspect]
     Indication: PRODUCT USED FOR UNKNOWN INDICATION
  54. MUPIROCIN [Suspect]
     Indication: PRODUCT USED FOR UNKNOWN INDICATION
  55. OSELTAMIVIR [Suspect]
     Indication: PRODUCT USED FOR UNKNOWN INDICATION
  56. PERCOCET [Suspect]
     Indication: PRODUCT USED FOR UNKNOWN INDICATION
  57. QUININE SULFATE [Suspect]
     Indication: PRODUCT USED FOR UNKNOWN INDICATION
  58. RIZATRIPTAN BENZOATE [Suspect]
     Indication: PRODUCT USED FOR UNKNOWN INDICATION
  59. ROFECOXIB [Suspect]
     Indication: PRODUCT USED FOR UNKNOWN INDICATION
  60. SUCRALFATE [Suspect]
     Indication: PRODUCT USED FOR UNKNOWN INDICATION
  61. BACTRIM DS [Suspect]
     Indication: PRODUCT USED FOR UNKNOWN INDICATION
  62. TRAZODONE HCL [Suspect]
     Indication: PRODUCT USED FOR UNKNOWN INDICATION
  63. TRIAMCINOLONE ACETONIDE [Suspect]
     Indication: PRODUCT USED FOR UNKNOWN INDICATION
  64. TRIAZOLAM [Suspect]
     Indication: PRODUCT USED FOR UNKNOWN INDICATION

REACTIONS (24)
  - Drug interaction [None]
  - Deep vein thrombosis [None]
  - Arthritis [None]
  - Blood chloride decreased [None]
  - Blood cholesterol increased [None]
  - Bronchitis [None]
  - Cholelithiasis [None]
  - Glaucoma [None]
  - Neuropathy peripheral [None]
  - Osteoarthritis [None]
  - Phlebitis [None]
  - Purpura senile [None]
  - Resorption bone increased [None]
  - Tarsal tunnel syndrome [None]
  - Thrombophlebitis superficial [None]
  - Vasculitis [None]
  - Vertigo positional [None]
  - Vestibular disorder [None]
  - Blood alkaline phosphatase increased [None]
  - Renal failure [None]
  - Blood sodium decreased [None]
  - Alanine aminotransferase increased [None]
  - Aspartate aminotransferase increased [None]
  - Dizziness [None]
